FAERS Safety Report 8274706-0 (Version None)
Quarter: 2012Q2

REPORT INFORMATION
  Report Type: 
  Country: None (occurrence: None)
  Receive Date: 20120411
  Receipt Date: 20120402
  Transmission Date: 20120825
  Serious: Yes (Other)
  Sender: FDA-Public Use
  Company Number: FR-TEVA-320057ISR

PATIENT
  Age: 35 Year
  Sex: Female

DRUGS (3)
  1. ACTIQ [Suspect]
     Indication: PAIN
     Dosage: 1600 MICROGRAM;
  2. ACTIQ [Suspect]
     Dosage: 2400 MICROGRAM;
  3. ACTIQ [Suspect]
     Dosage: 3200 MICROGRAM;

REACTIONS (3)
  - OVERDOSE [None]
  - OFF LABEL USE [None]
  - DRUG DEPENDENCE [None]
